FAERS Safety Report 16971456 (Version 1)
Quarter: 2019Q4

REPORT INFORMATION
  Report Type: Spontaneous
  Country: EG (occurrence: EG)
  Receive Date: 20191029
  Receipt Date: 20191029
  Transmission Date: 20200122
  Serious: Yes (Other)
  Sender: FDA-Public Use
  Company Number: EG-PFIZER INC-2019462676

PATIENT
  Age: 64 Year
  Sex: Female

DRUGS (1)
  1. CAMPTO [Suspect]
     Active Substance: IRINOTECAN
     Indication: COLORECTAL CANCER METASTATIC
     Dosage: CYCLIC
     Dates: start: 201808

REACTIONS (2)
  - Neuropathy peripheral [Not Recovered/Not Resolved]
  - Malaise [Unknown]
